FAERS Safety Report 23915078 (Version 1)
Quarter: 2024Q2

REPORT INFORMATION
  Report Type: Spontaneous
  Country: US (occurrence: None)
  Receive Date: 20240527
  Receipt Date: 20240527
  Transmission Date: 20240716
  Serious: No
  Sender: FDA-Public Use
  Company Number: None

PATIENT
  Age: 67 Year
  Sex: Female
  Weight: 90 kg

DRUGS (3)
  1. MONTELUKAST [Suspect]
     Active Substance: MONTELUKAST SODIUM
     Indication: Asthma
     Dosage: OTHER QUANTITY : 30 TABLET(S);?FREQUENCY : AT BEDTIME;?
     Route: 048
  2. PETROL LA [Concomitant]
  3. ATENOLOL [Concomitant]
     Active Substance: ATENOLOL

REACTIONS (3)
  - Anxiety [None]
  - Paraesthesia oral [None]
  - Tongue discomfort [None]

NARRATIVE: CASE EVENT DATE: 20240524
